FAERS Safety Report 6857102-X (Version None)
Quarter: 2010Q3

REPORT INFORMATION
  Report Type: 
  Country: None (occurrence: None)
  Receive Date: 20100719
  Receipt Date: 20100712
  Transmission Date: 20110219
  Serious: Yes (Hospitalization)
  Sender: FDA-Public Use
  Company Number: B0653304A

PATIENT
  Sex: Female

DRUGS (8)
  1. LAMICTAL [Suspect]
     Indication: EPILEPSY
     Dosage: 25MG TWICE PER DAY
     Route: 048
     Dates: start: 20100401
  2. LAMICTAL [Suspect]
     Dosage: 25MG PER DAY
     Route: 048
     Dates: end: 20100505
  3. SELENICA-R [Concomitant]
     Indication: EPILEPSY
     Dosage: 200MG PER DAY
     Route: 048
     Dates: start: 20090101
  4. LENDORMIN [Concomitant]
     Indication: EPILEPSY
     Dosage: .5MG PER DAY
     Route: 048
  5. ROHYPNOL [Concomitant]
     Indication: EPILEPSY
     Dosage: 1MG PER DAY
     Route: 048
     Dates: start: 20090101
  6. PRAVASTATIN [Concomitant]
     Route: 048
     Dates: start: 20100201
  7. FOLIAMIN [Concomitant]
     Dosage: .5MG PER DAY
     Dates: start: 20100401, end: 20100511
  8. DIAZEPAM [Concomitant]
     Dosage: 1MG PER DAY

REACTIONS (7)
  - ALANINE AMINOTRANSFERASE INCREASED [None]
  - DRUG RASH WITH EOSINOPHILIA AND SYSTEMIC SYMPTOMS [None]
  - EOSINOPHIL COUNT INCREASED [None]
  - ERYTHEMA [None]
  - LYMPHOCYTE COUNT DECREASED [None]
  - MONOCYTE COUNT INCREASED [None]
  - PYREXIA [None]
